FAERS Safety Report 6712479-0 (Version None)
Quarter: 2010Q2

REPORT INFORMATION
  Report Type: 
  Country: None (occurrence: None)
  Receive Date: 20100506
  Receipt Date: 20100428
  Transmission Date: 20101027
  Serious: No
  Sender: FDA-Public Use
  Company Number: US-BIOGENIDEC-2010BI014428

PATIENT
  Sex: Female

DRUGS (1)
  1. AVONEX [Suspect]
     Indication: MULTIPLE SCLEROSIS
     Route: 030
     Dates: start: 20090901, end: 20091124

REACTIONS (4)
  - COGNITIVE DISORDER [None]
  - DEPRESSION [None]
  - DRUG HYPERSENSITIVITY [None]
  - GAIT DISTURBANCE [None]
